FAERS Safety Report 19165842 (Version 1)
Quarter: 2021Q2

REPORT INFORMATION
  Report Type: Spontaneous
  Country: DE (occurrence: DE)
  Receive Date: 20210422
  Receipt Date: 20210422
  Transmission Date: 20210717
  Serious: Yes (Other)
  Sender: FDA-Public Use
  Company Number: DE-ASTRAZENECA-2021A314157

PATIENT
  Sex: Female

DRUGS (1)
  1. OSIMERTINIB. [Suspect]
     Active Substance: OSIMERTINIB
     Route: 048

REACTIONS (9)
  - Gaze palsy [Unknown]
  - Metastases to central nervous system [Unknown]
  - Gait disturbance [Unknown]
  - Neurological symptom [Unknown]
  - Paraparesis [Unknown]
  - Cerebellar atrophy [Unknown]
  - Metastases to meninges [Unknown]
  - Cerebellar syndrome [Unknown]
  - Dysarthria [Unknown]

NARRATIVE: CASE EVENT DATE: 201906
